FAERS Safety Report 6271860-7 (Version None)
Quarter: 2009Q3

REPORT INFORMATION
  Report Type: 
  Country: None (occurrence: None)
  Receive Date: 20090717
  Receipt Date: 20090707
  Transmission Date: 20100115
  Serious: Yes (Hospitalization)
  Sender: FDA-Public Use
  Company Number: PHHY2008MX33392

PATIENT
  Sex: Male

DRUGS (4)
  1. DIOVAN HCT [Suspect]
     Indication: HYPERTENSION
     Dosage: 160/25 MG 0.5  TABLET/DAY
     Route: 048
     Dates: start: 20060101
  2. DIOVAN HCT [Suspect]
     Dosage: 160/25 MG 1 TAB/DAY
     Route: 048
     Dates: start: 20081210
  3. PROPRANOLOL [Concomitant]
     Dosage: 1 TAB/DAY
     Route: 048
  4. ACETYLSALICYLIC ACID [Concomitant]
     Dosage: 0.5 TAB/DAY
     Route: 048

REACTIONS (2)
  - CATARACT [None]
  - CATARACT OPERATION [None]
